FAERS Safety Report 9614698 (Version 2)
Quarter: 2013Q4

REPORT INFORMATION
  Report Type: Spontaneous
  Country: US (occurrence: US)
  Receive Date: 20131011
  Receipt Date: 20131107
  Transmission Date: 20140711
  Serious: Yes (Hospitalization, Other)
  Sender: FDA-Public Use
  Company Number: US-BAYER-2013-122930

PATIENT
  Age: 38 Year
  Sex: Female

DRUGS (3)
  1. MIRENA [Suspect]
     Indication: CONTRACEPTION
     Dosage: 20 MCG/24HR, CONT
     Route: 015
     Dates: start: 20091211, end: 20110929
  2. MULTIVITAMINS [Concomitant]
  3. VITAMIN C [Concomitant]

REACTIONS (19)
  - Uterine perforation [None]
  - Genital haemorrhage [None]
  - Abdominal pain lower [None]
  - Pelvic pain [None]
  - Emotional distress [None]
  - Injury [None]
  - Device dislocation [None]
  - Medical device complication [None]
  - Internal injury [None]
  - Depression [None]
  - Anxiety [None]
  - Dyspareunia [None]
  - Lethargy [None]
  - Loss of libido [None]
  - Mood altered [None]
  - Procedural pain [None]
  - Menstruation irregular [None]
  - Fear [None]
  - Menorrhagia [None]
